FAERS Safety Report 9816920 (Version 2)
Quarter: 2014Q2

REPORT INFORMATION
  Report Type: Spontaneous
  Country: US (occurrence: US)
  Receive Date: 20140114
  Receipt Date: 20140513
  Transmission Date: 20141212
  Serious: Yes (Hospitalization, Other)
  Sender: FDA-Public Use
  Company Number: US-PFIZER INC-2014008219

PATIENT
  Age: 78 Year
  Sex: Female

DRUGS (11)
  1. GABAPENTIN [Suspect]
     Indication: NEURALGIA
     Dosage: 900 MG, DAILY (TOTAL)
  2. SIMVASTATIN [Concomitant]
  3. METFORMIN [Concomitant]
  4. CITALOPRAM [Concomitant]
  5. FLUTICASONE PROPIONATE [Concomitant]
     Route: 055
  6. ALBUTEROL [Concomitant]
     Route: 055
  7. LISINOPRIL [Concomitant]
     Dosage: 5 MG, 1X/DAY
  8. LISINOPRIL [Concomitant]
     Dosage: 5 MG, DAILY
  9. FUROSEMIDE [Concomitant]
     Dosage: 60 MG, 1X/DAY
  10. FUROSEMIDE [Concomitant]
     Dosage: 60 MG, DAILY (TOTAL)
  11. METOLAZONE [Concomitant]

REACTIONS (3)
  - Off label use [Unknown]
  - Toxicity to various agents [Unknown]
  - Myoclonus [Recovered/Resolved]
